FAERS Safety Report 6491704-8 (Version None)
Quarter: 2009Q4

REPORT INFORMATION
  Report Type: 
  Country: None (occurrence: None)
  Receive Date: 20091125
  Receipt Date: 20090429
  Transmission Date: 20100525
  Serious: Yes (Other)
  Sender: FDA-Public Use
  Company Number: 2009BH007628

PATIENT
  Sex: Female

DRUGS (25)
  1. DIANEAL [Suspect]
     Indication: PERITONEAL DIALYSIS
     Dosage: 12 L;EVERY DAY;IP
     Route: 033
  2. EPOGEN [Concomitant]
  3. VENOFER [Concomitant]
  4. LABTALOL [Concomitant]
  5. SIMVASTATIN [Concomitant]
  6. HECTOROL [Concomitant]
  7. COENZYME Q10 [Concomitant]
  8. VITAMIN C [Concomitant]
  9. CENTRUM [Concomitant]
  10. VITAMIN D [Concomitant]
  11. MIRALAX [Concomitant]
  12. ASPIRIN [Concomitant]
  13. LANTUS [Concomitant]
  14. TYLENOL (CAPLET) [Concomitant]
  15. COLACE [Concomitant]
  16. NORVASC [Concomitant]
  17. GENTAMICIN [Concomitant]
  18. FORTAZ [Concomitant]
  19. CEFAZOLIN [Concomitant]
  20. FISH OIL [Concomitant]
  21. INSULIN HUMULIN [Concomitant]
  22. INSULIN HUMLIN [Concomitant]
  23. REGLAN [Concomitant]
  24. FOSRENOL [Concomitant]
  25. AVAPRO [Concomitant]

REACTIONS (2)
  - PERITONEAL DIALYSIS COMPLICATION [None]
  - PERITONITIS BACTERIAL [None]
